FAERS Safety Report 6689356-7 (Version None)
Quarter: 2010Q2

REPORT INFORMATION
  Report Type: 
  Country: None (occurrence: None)
  Receive Date: 20100419
  Receipt Date: 20100419
  Transmission Date: 20101027
  Serious: Yes (Other)
  Sender: FDA-Public Use
  Company Number: None

PATIENT
  Sex: Female
  Weight: 74.6 kg

DRUGS (14)
  1. DOXIL [Suspect]
     Indication: OVARIAN CANCER
     Route: 041
     Dates: start: 20090806
  2. DOXIL [Suspect]
     Indication: OVARIAN CANCER
     Route: 041
     Dates: start: 20090910
  3. DOXIL [Suspect]
     Indication: OVARIAN CANCER
     Route: 041
     Dates: start: 20091022
  4. DOXIL [Suspect]
     Indication: OVARIAN CANCER
     Route: 041
     Dates: start: 20091212
  5. DOXIL [Suspect]
     Indication: OVARIAN CANCER
     Route: 041
     Dates: start: 20100113
  6. DOXIL [Suspect]
     Indication: OVARIAN CANCER
     Route: 041
     Dates: start: 20100301
  7. DOXIL [Suspect]
     Indication: OVARIAN CANCER
     Route: 041
     Dates: start: 20100412
  8. DOXORUBICIN HCL [Suspect]
     Dosage: 77 MG EVERY 6 WEEKS INTRAVENOUS DRIP 041
     Route: 041
     Dates: start: 20090806
  9. DOXORUBICIN HCL [Suspect]
     Dosage: 77 MG EVERY 6 WEEKS INTRAVENOUS DRIP 041
     Route: 041
     Dates: start: 20090910
  10. DOXORUBICIN HCL [Suspect]
     Dosage: 77 MG EVERY 6 WEEKS INTRAVENOUS DRIP 041
     Route: 041
     Dates: start: 20091022
  11. DOXORUBICIN HCL [Suspect]
     Dosage: 77 MG EVERY 6 WEEKS INTRAVENOUS DRIP 041
     Route: 041
     Dates: start: 20091212
  12. DOXORUBICIN HCL [Suspect]
     Dosage: 77 MG EVERY 6 WEEKS INTRAVENOUS DRIP 041
     Route: 041
     Dates: start: 20100113
  13. DOXORUBICIN HCL [Suspect]
     Dosage: 77 MG EVERY 6 WEEKS INTRAVENOUS DRIP 041
     Route: 041
     Dates: start: 20100301
  14. DOXORUBICIN HCL [Suspect]
     Dosage: 77 MG EVERY 6 WEEKS INTRAVENOUS DRIP 041
     Route: 041
     Dates: start: 20100412

REACTIONS (3)
  - HAEMOPTYSIS [None]
  - INTERSTITIAL LUNG DISEASE [None]
  - RALES [None]
